FAERS Safety Report 4381727-7 (Version None)
Quarter: 2004Q2

REPORT INFORMATION
  Report Type: 
  Country: None (occurrence: None)
  Receive Date: 20040615
  Receipt Date: 20040607
  Transmission Date: 20050107
  Serious: Yes (Other)
  Sender: FDA-Public Use
  Company Number: STA-AE-04-MTX-189

PATIENT
  Age: 53 Year
  Sex: Male

DRUGS (2)
  1. METHOTREXATE [Suspect]
     Indication: RHEUMATOID ARTHRITIS
     Dosage: ORAL
     Route: 048
     Dates: start: 20010101, end: 20040526
  2. ENBREL [Suspect]
     Indication: RHEUMATOID ARTHRITIS
     Dosage: 25 MG 2X PER WK, SC
     Route: 058
     Dates: start: 20040104, end: 20040526

REACTIONS (3)
  - EOSINOPHILIA [None]
  - LYMPHOCYTE MORPHOLOGY ABNORMAL [None]
  - LYMPHOMA [None]
